FAERS Safety Report 8998448 (Version 2)
Quarter: 2013Q1

REPORT INFORMATION
  Report Type: Spontaneous
  Country: US (occurrence: US)
  Receive Date: 20130103
  Receipt Date: 20130322
  Transmission Date: 20140127
  Serious: No
  Sender: FDA-Public Use
  Company Number: US-PFIZER INC-2012334408

PATIENT
  Age: 57 Year
  Sex: Female

DRUGS (3)
  1. VANCOMYCIN HCL [Suspect]
     Dosage: UNK
  2. NIACIN [Suspect]
     Dosage: UNK
  3. SULFUR [Suspect]
     Dosage: UNK

REACTIONS (4)
  - Drug hypersensitivity [Unknown]
  - Urticaria [Unknown]
  - Nausea [Unknown]
  - Vomiting [Unknown]
